FAERS Safety Report 16651271 (Version 1)
Quarter: 2019Q3

REPORT INFORMATION
  Report Type: Report from Study
  Country: CN (occurrence: CN)
  Receive Date: 20190731
  Receipt Date: 20190731
  Transmission Date: 20191004
  Serious: Yes (Other)
  Sender: FDA-Public Use
  Company Number: CN-PFIZER INC-2019314308

PATIENT
  Sex: Female

DRUGS (4)
  1. HEMABATE [Suspect]
     Active Substance: CARBOPROST TROMETHAMINE
     Indication: POSTPARTUM HAEMORRHAGE
     Dosage: 250 UG, UNK
     Route: 030
  2. OXYTOCIN. [Suspect]
     Active Substance: OXYTOCIN
     Indication: POSTPARTUM HAEMORRHAGE
     Dosage: 20 U
     Route: 030
  3. GLUCOSE [Concomitant]
     Active Substance: DEXTROSE
     Dosage: 500 ML, UNK
     Route: 041
  4. OXYTOCIN. [Suspect]
     Active Substance: OXYTOCIN
     Dosage: 20 U
     Route: 041

REACTIONS (2)
  - Uterine haemorrhage [Unknown]
  - Lochial infection [Unknown]
